FAERS Safety Report 10308319 (Version 3)
Quarter: 2014Q3

REPORT INFORMATION
  Report Type: Spontaneous
  Country: AU (occurrence: None)
  Receive Date: 20140714
  Receipt Date: 20140819
  Transmission Date: 20150326
  Serious: Yes (Hospitalization, Other)
  Sender: FDA-Public Use
  Company Number: 2014AP003570

PATIENT
  Age: 77 Year
  Sex: Female
  Weight: 46 kg

DRUGS (3)
  1. CLARITHROMYCIN. [Suspect]
     Active Substance: CLARITHROMYCIN
     Indication: COUGH
     Dates: start: 20140626, end: 20140628
  2. CLARITHROMYCIN. [Suspect]
     Active Substance: CLARITHROMYCIN
     Indication: PHARYNGITIS
     Dates: start: 20140626, end: 20140628
  3. VIT D (DERCOCALCIFEROL) [Concomitant]

REACTIONS (13)
  - Dysgeusia [None]
  - Personality change [None]
  - Dizziness [None]
  - Haematochezia [None]
  - White blood cell count increased [None]
  - Fatigue [None]
  - Balance disorder [None]
  - Diarrhoea [None]
  - Confusional state [None]
  - Discomfort [None]
  - Constipation [None]
  - Anxiety [None]
  - Affect lability [None]

NARRATIVE: CASE EVENT DATE: 20140627
